FAERS Safety Report 24910167 (Version 1)
Quarter: 2025Q1

REPORT INFORMATION
  Report Type: Report from Study
  Country: US (occurrence: US)
  Receive Date: 20250131
  Receipt Date: 20250131
  Transmission Date: 20250409
  Serious: Yes (Other)
  Sender: ABBVIE
  Company Number: US-ABBVIE-6090584

PATIENT
  Age: 58 Year
  Sex: Male
  Weight: 81 kg

DRUGS (2)
  1. HUMIRA [Suspect]
     Active Substance: ADALIMUMAB
     Indication: Psoriatic arthropathy
     Dosage: UNKNOWN
     Route: 058
     Dates: start: 2024
  2. HUMIRA [Suspect]
     Active Substance: ADALIMUMAB
     Route: 058
     Dates: start: 20250115

REACTIONS (3)
  - Osteoarthritis [Recovering/Resolving]
  - Hypertension [Unknown]
  - Inflammation [Recovering/Resolving]

NARRATIVE: CASE EVENT DATE: 20240101
